FAERS Safety Report 8923307 (Version 1)
Quarter: 2012Q4

REPORT INFORMATION
  Report Type: Spontaneous
  Country: US (occurrence: None)
  Receive Date: 20121114
  Receipt Date: 20121114
  Transmission Date: 20130627
  Serious: Yes (Hospitalization)
  Sender: FDA-Public Use
  Company Number: UTC-025089

PATIENT
  Age: 85 Year
  Sex: Female
  Weight: 76.36 kg

DRUGS (2)
  1. TYVASO [Suspect]
     Indication: PULMONARY HYPERTENSION SECONDARY
     Route: 055
     Dates: start: 20110325
  2. LETAIRIS (AMBRISENTAN) [Concomitant]

REACTIONS (2)
  - Haemorrhage [None]
  - Dyspnoea [None]
